FAERS Safety Report 20006238 (Version 1)
Quarter: 2021Q4

REPORT INFORMATION
  Report Type: Report from Study
  Country: US (occurrence: US)
  Receive Date: 20211028
  Receipt Date: 20211028
  Transmission Date: 20220303
  Serious: No
  Sender: FDA-Public Use
  Company Number: US-NOVARTISTESTPH-NVSC2021US244536

PATIENT
  Age: 56 Year
  Sex: Female

DRUGS (1)
  1. SANDOSTATIN [Suspect]
     Active Substance: OCTREOTIDE ACETATE
     Indication: Pituitary enlargement
     Route: 030
     Dates: start: 201501

REACTIONS (4)
  - Injection site pain [Unknown]
  - Injection site erythema [Unknown]
  - Injection site swelling [Unknown]
  - Injection site warmth [Unknown]

NARRATIVE: CASE EVENT DATE: 20211025
